FAERS Safety Report 4553492-1 (Version None)
Quarter: 2005Q1

REPORT INFORMATION
  Report Type: 
  Country: None (occurrence: None)
  Receive Date: 20050113
  Receipt Date: 20050105
  Transmission Date: 20050727
  Serious: Yes (Death)
  Sender: FDA-Public Use
  Company Number: B0364017A

PATIENT
  Sex: 0

DRUGS (3)
  1. ALKERAN [Suspect]
     Dosage: INTRAVENOUS
     Route: 042
  2. STEM CELL TRANSPLANT [Concomitant]
  3. MONOCLONAL ANTIBODY [Concomitant]

REACTIONS (1)
  - DIFFUSE ALVEOLAR DAMAGE [None]
